FAERS Safety Report 8684430 (Version 2)
Quarter: 2013Q1

REPORT INFORMATION
  Report Type: Report from Study
  Country: JP (occurrence: JP)
  Receive Date: 20120726
  Receipt Date: 20130313
  Transmission Date: 20140127
  Serious: Yes (Other)
  Sender: FDA-Public Use
  Company Number: JP-009507513-1207JPN008156

PATIENT
  Age: 56 Year
  Sex: Male
  Weight: 66 kg

DRUGS (10)
  1. PEGINTRON [Suspect]
     Indication: CHRONIC HEPATITIS C
     Dosage: 1.5MCG/KG/WEEK
     Route: 058
     Dates: start: 20120423, end: 20120429
  2. PEGINTRON [Suspect]
     Dosage: 1.0MCG/KG/WEEK
     Route: 058
     Dates: start: 20120430, end: 20121001
  3. REBETOL [Suspect]
     Indication: CHRONIC HEPATITIS C
     Dosage: 800 MG, QD
     Route: 048
     Dates: start: 20120423, end: 20120527
  4. REBETOL [Suspect]
     Dosage: 600 MG, QD
     Route: 048
     Dates: start: 20120528, end: 20120704
  5. TELAVIC [Suspect]
     Indication: CHRONIC HEPATITIS C
     Dosage: 2250 MG, QD
     Route: 048
     Dates: start: 20120423, end: 20120617
  6. TELAVIC [Suspect]
     Dosage: 1500 MG, QD
     Route: 048
     Dates: start: 20120618, end: 20120624
  7. PREDONINE [Suspect]
     Indication: DRUG ERUPTION
     Dosage: 30 MG, QD
     Route: 048
     Dates: start: 20120618, end: 20120701
  8. URSO [Concomitant]
     Indication: CHRONIC HEPATITIS C
     Dosage: 600 MG, QD
     Route: 048
  9. ANTEBATE [Concomitant]
     Dosage: QUANTUM PLACET/DAY
     Route: 061
     Dates: start: 20120426
  10. FLAVITAN [Concomitant]
     Route: 048
     Dates: start: 20120521, end: 20120527

REACTIONS (2)
  - Rash [Recovered/Resolved]
  - Drug eruption [Recovered/Resolved]
